FAERS Safety Report 7224310-8 (Version None)
Quarter: 2011Q1

REPORT INFORMATION
  Report Type: 
  Country: None (occurrence: None)
  Receive Date: 20110106
  Receipt Date: 20110106
  Transmission Date: 20110831
  Serious: Yes (Other)
  Sender: FDA-Public Use
  Company Number: None

PATIENT
  Sex: Female
  Weight: 58.0604 kg

DRUGS (2)
  1. SEROQUEL [Concomitant]
  2. NITROFURANTOIN MACROCRYSTALLINE [Suspect]
     Indication: URINARY TRACT INFECTION
     Dosage: 100MG 2- 2X DAY FOR 3 DAYS + THEN: 1 A DAY
     Dates: start: 20101206

REACTIONS (5)
  - PYREXIA [None]
  - CHILLS [None]
  - HEADACHE [None]
  - DIARRHOEA [None]
  - RESPIRATORY DISTRESS [None]
